FAERS Safety Report 12644238 (Version 1)
Quarter: 2016Q3

REPORT INFORMATION
  Report Type: Spontaneous
  Country: US (occurrence: US)
  Receive Date: 20160811
  Receipt Date: 20160811
  Transmission Date: 20161109
  Serious: Yes (Other)
  Sender: FDA-Public Use
  Company Number: US-PFIZER INC-2016368784

PATIENT
  Age: 32 Year
  Sex: Male

DRUGS (2)
  1. NORMAL SALINE [Concomitant]
     Active Substance: SODIUM CHLORIDE
     Indication: HYPOTENSION
     Dosage: 2 L, UNK
     Route: 040
  2. NOREPINEPHRINE BITARTRATE. [Suspect]
     Active Substance: NOREPINEPHRINE BITARTRATE
     Indication: HYPOTENSION
     Dosage: UNK, (TITRATED UP TO A MAXIMUM OF 16 MCG/MIN.)
     Route: 041

REACTIONS (3)
  - Muscle necrosis [Recovering/Resolving]
  - Extravasation [Recovering/Resolving]
  - Compartment syndrome [Recovering/Resolving]
